FAERS Safety Report 5473590-8 (Version None)
Quarter: 2007Q3

REPORT INFORMATION
  Report Type: 
  Country: None (occurrence: None)
  Receive Date: 20070831
  Receipt Date: 20070604
  Transmission Date: 20080115
  Serious: No
  Sender: FDA-Public Use
  Company Number: 242432

PATIENT
  Age: 71 Year
  Sex: Male

DRUGS (21)
  1. LUCENTIS [Suspect]
     Indication: OCULAR VASCULAR DISORDER
     Dosage: 1/MONTH, INTRAVITREAL
     Route: 050
     Dates: start: 20060801
  2. AMIODARONE HCL [Concomitant]
  3. SPIRIVA [Concomitant]
  4. ASPIRIN [Concomitant]
  5. FLOMAX [Concomitant]
  6. DOXAZOSIN MESYLATE [Concomitant]
  7. BENICAR [Concomitant]
  8. ZESTRIL [Concomitant]
  9. INDAPAMIDE [Concomitant]
  10. POTASSIUM CHLORIDE [Concomitant]
  11. TRICOR [Concomitant]
  12. CLONIDINE [Concomitant]
  13. ADVAIR DISKUS 100/50 [Concomitant]
  14. ALBUTEROL (ALBUTEROL/ALBUTEROL SULFATE) [Concomitant]
  15. MVI (MULTIVITAMINS NOS) [Concomitant]
  16. ASCORBIC ACID [Concomitant]
  17. VITAMIN E [Concomitant]
  18. LUTEIN [Concomitant]
  19. ZINC (ZINC NOS) [Concomitant]
  20. COPPER [Concomitant]
  21. LEVAQUIN [Concomitant]

REACTIONS (1)
  - EYE INFECTION [None]
